FAERS Safety Report 9656722 (Version 1)
Quarter: 2013Q4

REPORT INFORMATION
  Report Type: Spontaneous
  Country: NL (occurrence: None)
  Receive Date: 20131028
  Receipt Date: 20131028
  Transmission Date: 20140711
  Serious: Yes (Hospitalization)
  Sender: FDA-Public Use
  Company Number: AUR-APL-2013-08768

PATIENT
  Age: 28 Month
  Sex: Female
  Weight: 13 kg

DRUGS (1)
  1. OLANZAPINE [Suspect]

REACTIONS (9)
  - Accidental exposure to product [None]
  - Toxicity to various agents [None]
  - Tachycardia [None]
  - Hypertension [None]
  - Hypotension [None]
  - Miosis [None]
  - Loss of consciousness [None]
  - Agitation [None]
  - Dysarthria [None]
